FAERS Safety Report 16764001 (Version 1)
Quarter: 2019Q3

REPORT INFORMATION
  Report Type: Report from Study
  Country: JP (occurrence: JP)
  Receive Date: 20190902
  Receipt Date: 20190902
  Transmission Date: 20191005
  Serious: Yes (Other)
  Sender: FDA-Public Use
  Company Number: JP-BAUSCH-BL-2018-026001

PATIENT
  Age: 65 Year
  Sex: Female

DRUGS (18)
  1. AMLODIN [Concomitant]
     Active Substance: AMLODIPINE BESYLATE
     Indication: PRODUCT USED FOR UNKNOWN INDICATION
  2. BAYASPIRIN [Concomitant]
     Active Substance: ASPIRIN
     Indication: PRODUCT USED FOR UNKNOWN INDICATION
  3. LUMICEF [Suspect]
     Active Substance: BRODALUMAB
     Indication: PUSTULAR PSORIASIS
     Dosage: SYRINGE
     Route: 058
     Dates: start: 20171205, end: 20171219
  4. LUMICEF [Suspect]
     Active Substance: BRODALUMAB
     Dosage: SYRINGE
     Route: 058
     Dates: start: 20180403, end: 20180417
  5. NORAGUARD [Concomitant]
     Indication: PRODUCT USED FOR UNKNOWN INDICATION
  6. LUMICEF [Suspect]
     Active Substance: BRODALUMAB
     Dosage: SYRINGE, DURATION: 2 MONTHS 12 DAYS
     Route: 058
     Dates: start: 20180102, end: 20180313
  7. REBAMIPIDE [Concomitant]
     Active Substance: REBAMIPIDE
     Indication: PRODUCT USED FOR UNKNOWN INDICATION
     Dosage: DRUG UNSPECIFIED FORM
     Route: 048
  8. BETAHISTINE MESILATE [Concomitant]
     Active Substance: BETAHISTINE MESILATE
     Indication: PRODUCT USED FOR UNKNOWN INDICATION
     Dosage: ENTERIC TABLET
  9. DERMOVATE [Concomitant]
     Active Substance: CLOBETASOL
     Indication: PRODUCT USED FOR UNKNOWN INDICATION
  10. KINDAVATE [Concomitant]
     Active Substance: CLOBETASONE BUTYRATE
     Indication: PRODUCT USED FOR UNKNOWN INDICATION
  11. LIDOMEX [Concomitant]
     Active Substance: PREDNISOLONE VALERATE ACETATE
     Indication: PRODUCT USED FOR UNKNOWN INDICATION
     Dosage: EXCEPT LOTION FOR EYE
     Dates: start: 20180711, end: 20180903
  12. LUMICEF [Suspect]
     Active Substance: BRODALUMAB
     Dosage: SYRINGE
     Route: 058
     Dates: start: 20180508, end: 20180828
  13. GOREISAN [Concomitant]
     Active Substance: HERBALS
     Indication: PRODUCT USED FOR UNKNOWN INDICATION
     Dosage: DRUG UNSPECIFIED FORM
     Route: 048
  14. LUMICEF [Suspect]
     Active Substance: BRODALUMAB
     Dosage: SYRINGE
     Route: 058
     Dates: start: 20180918
  15. FEXOFENADINE [Concomitant]
     Active Substance: FEXOFENADINE HYDROCHLORIDE
     Indication: PRODUCT USED FOR UNKNOWN INDICATION
  16. DERMOVATE [Concomitant]
     Active Substance: CLOBETASOL
     Indication: PRODUCT USED FOR UNKNOWN INDICATION
     Dosage: EXCEPT LOTION FOR EYE
  17. HIRUDOID [Concomitant]
     Active Substance: GLYCOSAMINOGLYCANS
     Indication: PRODUCT USED FOR UNKNOWN INDICATION
     Dosage: EXTERNAL USE
     Dates: start: 20180904
  18. ITRACONAZOLE. [Concomitant]
     Active Substance: ITRACONAZOLE
     Indication: PRODUCT USED FOR UNKNOWN INDICATION
     Dates: start: 20180508, end: 20180604

REACTIONS (3)
  - Hypohidrosis [Not Recovered/Not Resolved]
  - Oral candidiasis [Recovered/Resolved]
  - Acne [Recovered/Resolved]

NARRATIVE: CASE EVENT DATE: 20171219
